FAERS Safety Report 7853477-3 (Version None)
Quarter: 2011Q3

REPORT INFORMATION
  Report Type: 
  Country: None (occurrence: None)
  Receive Date: 20110915
  Receipt Date: 20110210
  Transmission Date: 20111222
  Serious: Yes (Hospitalization)
  Sender: FDA-Public Use
  Company Number: 2011027573

PATIENT
  Sex: Female
  Weight: 50.3493 kg

DRUGS (16)
  1. DEXTROAMPETAMINE SULFATE TAB [Concomitant]
  2. XANAX [Concomitant]
  3. NEXIUM [Concomitant]
  4. ZITHROMAX [Concomitant]
  5. ATROVENT [Concomitant]
  6. MAXALT (RIZATRIPTAN) [Concomitant]
  7. PRIVIGEN [Suspect]
     Indication: HYPOGAMMAGLOBULINAEMIA
     Dosage: 30 G 1X/4 WEEKS, TITRATED FROM 30CC/HR UP TO 120CC/HR INTRAVENOUS (NOT OTHERWISE SPECIFIED)
     Route: 042
     Dates: start: 20101228, end: 20101228
  8. ALBUTEROL [Concomitant]
  9. FROVA (FROVATRIPTAN SUCCINATE MONOHYDRATE) [Concomitant]
  10. PHENERGAN [Concomitant]
  11. SYNTHROID [Concomitant]
  12. TOPAMAX [Concomitant]
  13. BONIVA [Concomitant]
  14. TUSSIONEX (TUSSIONEX /00140501/) [Concomitant]
  15. MAXAIR HFA (PIRBUTEROL ACETATE) [Concomitant]
  16. DIHYDROERGOTAMINE MESYLATE (DIHYDROERGOTAMINE) [Concomitant]

REACTIONS (1)
  - THROMBOSIS [None]
